FAERS Safety Report 6809932-8 (Version None)
Quarter: 2010Q2

REPORT INFORMATION
  Report Type: 
  Country: None (occurrence: None)
  Receive Date: 20100630
  Receipt Date: 20100622
  Transmission Date: 20101027
  Serious: Yes (Death)
  Sender: FDA-Public Use
  Company Number: A0854795A

PATIENT
  Age: 2 Month
  Sex: Male
  Weight: 3.5 kg

DRUGS (5)
  1. PEDIARIX [Suspect]
     Indication: PROPHYLAXIS
     Dosage: .5ML SINGLE DOSE
     Route: 030
     Dates: start: 20100407, end: 20100407
  2. ZANTAC [Suspect]
     Dosage: .6ML THREE TIMES PER DAY
     Route: 048
  3. ACTHIB [Suspect]
     Indication: PROPHYLAXIS
     Route: 030
     Dates: start: 20100407, end: 20100407
  4. PREVNAR [Suspect]
     Indication: PROPHYLAXIS
     Route: 030
     Dates: start: 20100407, end: 20100407
  5. ENGERIX-B [Concomitant]
     Indication: PROPHYLAXIS
     Route: 065
     Dates: start: 20100101, end: 20100101

REACTIONS (1)
  - DEATH [None]
